FAERS Safety Report 26169004 (Version 1)
Quarter: 2025Q4

REPORT INFORMATION
  Report Type: Spontaneous
  Country: EU (occurrence: EU)
  Receive Date: 20251217
  Receipt Date: 20251217
  Transmission Date: 20260118
  Serious: Yes (Hospitalization)
  Sender: RANBAXY
  Company Number: EU-SAMSUNG BIOEPIS-SB-2024-26646

PATIENT
  Age: 70 Year
  Sex: Male
  Weight: 80 kg

DRUGS (13)
  1. OXALIPLATIN [Suspect]
     Active Substance: OXALIPLATIN
     Indication: Oesophageal adenocarcinoma
     Dosage: 182 MILLIGRAM
     Route: 042
     Dates: start: 20240425
  2. OXALIPLATIN [Suspect]
     Active Substance: OXALIPLATIN
     Dosage: 133 MILLIGRAM
     Route: 042
     Dates: start: 20241017
  3. TRASTUZUMAB [Suspect]
     Active Substance: TRASTUZUMAB
     Indication: Oesophageal adenocarcinoma
     Dosage: 656 MILLIGRAM, 1 DOSE/3 WEEKS
     Route: 065
     Dates: start: 20240425
  4. TRASTUZUMAB [Suspect]
     Active Substance: TRASTUZUMAB
     Dosage: 462 MILLIGRAM, 1 DOSE/3 WEEKS
     Route: 042
     Dates: start: 20241010
  5. PEMBROLIZUMAB [Suspect]
     Active Substance: PEMBROLIZUMAB
     Indication: Oesophageal adenocarcinoma
     Dosage: 200 MG FLAT DOSE, D1/D22/D43 PRE-AND POST OP AND THEN D1 Q3W;
     Route: 065
     Dates: start: 20240425
  6. PEMBROLIZUMAB [Suspect]
     Active Substance: PEMBROLIZUMAB
     Dosage: 200 MG FLAT DOSE, D1/D22/D43 PRE-AND POST OP AND THEN D1 Q3W; (LAST DOSE)
     Route: 042
     Dates: start: 20240606
  7. PEMBROLIZUMAB [Suspect]
     Active Substance: PEMBROLIZUMAB
     Dosage: 200 MILLIGRAM, 1 DOSE/3 WEEKS
     Route: 065
     Dates: start: 20241010
  8. DOCETAXEL [Suspect]
     Active Substance: DOCETAXEL
     Indication: Oesophageal adenocarcinoma
     Dosage: 107 MILLIGRAM
     Route: 065
     Dates: start: 20240425
  9. DOCETAXEL [Suspect]
     Active Substance: DOCETAXEL
     Dosage: 78 MILLIGRAM
     Route: 042
     Dates: start: 20241017
  10. LEUCOVORIN [Suspect]
     Active Substance: LEUCOVORIN\LEUCOVORIN CALCIUM
     Indication: Oesophageal adenocarcinoma
     Dosage: 429 MILLIGRAM
     Route: 065
     Dates: start: 20240425
  11. LEUCOVORIN [Suspect]
     Active Substance: LEUCOVORIN\LEUCOVORIN CALCIUM
     Dosage: 313 MILLIGRAM
     Route: 042
     Dates: start: 20241017
  12. FLUOROURACIL [Suspect]
     Active Substance: FLUOROURACIL
     Indication: Oesophageal adenocarcinoma
     Dosage: 5580 MILLIGRAM
     Route: 065
     Dates: start: 20240425
  13. FLUOROURACIL [Suspect]
     Active Substance: FLUOROURACIL
     Dosage: 4000 MILLIGRAM
     Route: 042
     Dates: start: 20241017

REACTIONS (5)
  - Hypotension [Recovered/Resolved]
  - Gastrointestinal anastomotic leak [Recovered/Resolved]
  - Pancytopenia [Recovered/Resolved]
  - Diarrhoea [Recovered/Resolved]
  - Off label use [Unknown]

NARRATIVE: CASE EVENT DATE: 20240718
